FAERS Safety Report 5334697-9 (Version None)
Quarter: 2007Q2

REPORT INFORMATION
  Report Type: 
  Country: None (occurrence: None)
  Receive Date: 20070521
  Receipt Date: 20070508
  Transmission Date: 20071010
  Serious: Yes (Hospitalization)
  Sender: FDA-Public Use
  Company Number: CLOF-10445

PATIENT
  Age: 9 Year
  Sex: Female
  Weight: 23.6 kg

DRUGS (13)
  1. CLOFARABINE. MFR: GENZYME [Suspect]
     Indication: ACUTE MYELOID LEUKAEMIA
     Dosage: 27 MG QD X 5 IV
     Route: 042
     Dates: start: 20061121, end: 20061125
  2. CLOFARABINE. MFR: GENZYME [Suspect]
     Indication: ACUTE MYELOID LEUKAEMIA
     Dosage: 27 MG QD IV
     Route: 042
     Dates: start: 20070119, end: 20070122
  3. ETOPOSIDE [Suspect]
     Indication: ACUTE MYELOID LEUKAEMIA
     Dosage: 90 MG QD X 5 IV
     Route: 042
     Dates: start: 20061121, end: 20061125
  4. ETOPOSIDE [Suspect]
     Indication: ACUTE MYELOID LEUKAEMIA
     Dosage: 90 MG QD IV
     Route: 042
     Dates: start: 20070119, end: 20070122
  5. CYCLOPHOSPHAMIDE [Suspect]
     Indication: ACUTE MYELOID LEUKAEMIA
     Dosage: 400 MG QD X 5 IV
     Route: 042
     Dates: start: 20061121, end: 20061125
  6. CYCLOPHOSPHAMIDE [Suspect]
     Indication: ACUTE MYELOID LEUKAEMIA
     Dosage: 400 MG QD IV
     Route: 042
     Dates: start: 20070119, end: 20070122
  7. VORICONAZOLE [Concomitant]
  8. BACTRIM. MFR: HOFFMAN-LA ROCHE [Concomitant]
  9. POTASSIUM CHLORIDE [Concomitant]
  10. SENNA [Concomitant]
  11. FILGRASTIM [Concomitant]
  12. PERIACTIN. MFR: MERCK SHARP + DOME [Concomitant]
  13. CYTARABINE [Concomitant]

REACTIONS (21)
  - ATELECTASIS [None]
  - BACTERIAL INFECTION [None]
  - BLOOD PRESSURE DECREASED [None]
  - CANDIDIASIS [None]
  - CENTRAL NERVOUS SYSTEM INFECTION [None]
  - CEREBRAL FUNGAL INFECTION [None]
  - CSF TEST ABNORMAL [None]
  - CULTURE STOOL POSITIVE [None]
  - FUNGAL INFECTION [None]
  - HAEMATOCRIT DECREASED [None]
  - HAEMOGLOBIN DECREASED [None]
  - NERVOUS SYSTEM DISORDER [None]
  - NUCLEAR MAGNETIC RESONANCE IMAGING BRAIN ABNORMAL [None]
  - OPPORTUNISTIC INFECTION [None]
  - ORAL INTAKE REDUCED [None]
  - PLATELET COUNT ABNORMAL [None]
  - PLEURAL FIBROSIS [None]
  - RASH PRURITIC [None]
  - RESPIRATORY TRACT INFECTION FUNGAL [None]
  - STREPTOCOCCAL INFECTION [None]
  - WHITE BLOOD CELL COUNT ABNORMAL [None]
